FAERS Safety Report 7543663-4 (Version None)
Quarter: 2011Q2

REPORT INFORMATION
  Report Type: 
  Country: None (occurrence: None)
  Receive Date: 20110613
  Receipt Date: 20030325
  Transmission Date: 20111010
  Serious: Yes (Death)
  Sender: FDA-Public Use
  Company Number: PHHO2002CA10385

PATIENT
  Sex: Female

DRUGS (9)
  1. VENTOLIN HFA [Concomitant]
     Indication: ASTHMA
     Dosage: UNK, PRN
  2. CLOPIXOL [Concomitant]
  3. AKINETON [Concomitant]
  4. CLONAZEPAM [Concomitant]
  5. PRILOSEC [Concomitant]
  6. DILANTIN [Concomitant]
  7. CLOZAPINE [Suspect]
     Dosage: 650 MG, QD
     Dates: start: 19990304
  8. CELEXA [Concomitant]
  9. TOPAMAX [Concomitant]

REACTIONS (1)
  - EPILEPSY [None]
